FAERS Safety Report 5694001-3 (Version None)
Quarter: 2008Q2

REPORT INFORMATION
  Report Type: 
  Country: None (occurrence: None)
  Receive Date: 20080403
  Receipt Date: 20080319
  Transmission Date: 20081010
  Serious: Yes (Hospitalization)
  Sender: FDA-Public Use
  Company Number: CA-GENENTECH-241053

PATIENT
  Sex: Female

DRUGS (6)
  1. BEVACIZUMAB [Suspect]
     Indication: BREAST CANCER METASTATIC
     Dosage: 1025 MG, Q3W
     Route: 042
     Dates: start: 20070207
  2. BEVACIZUMAB [Suspect]
     Dosage: 140 MG, Q3W
     Dates: start: 20070228
  3. DOCETAXEL [Suspect]
     Indication: BREAST CANCER METASTATIC
     Dosage: 170 MG, Q3W
     Route: 042
     Dates: start: 20070207
  4. DOCETAXEL [Suspect]
     Dosage: 140 MG, UNK
  5. ZOFRAN [Concomitant]
     Indication: DRUG USE FOR UNKNOWN INDICATION
     Dates: start: 20070207
  6. DECADRON [Concomitant]
     Indication: DRUG USE FOR UNKNOWN INDICATION
     Dates: start: 20070207

REACTIONS (1)
  - FEBRILE NEUTROPENIA [None]
